FAERS Safety Report 7935736-9 (Version None)
Quarter: 2011Q4

REPORT INFORMATION
  Report Type: 
  Country: None (occurrence: None)
  Receive Date: 20111123
  Receipt Date: 20111111
  Transmission Date: 20120403
  Serious: Yes (Other)
  Sender: FDA-Public Use
  Company Number: GB-JNJFOC-20111106762

PATIENT
  Age: 5 Decade
  Sex: Male

DRUGS (1)
  1. ZYTIGA [Suspect]
     Indication: PROSTATE CANCER METASTATIC
     Dosage: CYCLE 1
     Route: 048

REACTIONS (3)
  - PAIN [None]
  - DIARRHOEA [None]
  - VOMITING [None]
